FAERS Safety Report 7313426-3 (Version None)
Quarter: 2011Q1

REPORT INFORMATION
  Report Type: 
  Country: None (occurrence: None)
  Receive Date: 20110215
  Receipt Date: 20110215
  Transmission Date: 20110831
  Serious: Yes (Other)
  Sender: FDA-Public Use
  Company Number: None

PATIENT
  Age: 71 Year
  Sex: Female
  Weight: 62.5964 kg

DRUGS (1)
  1. FENTANYL [Suspect]
     Dosage: IV
     Route: 042
     Dates: start: 20110117, end: 20110117

REACTIONS (2)
  - SIMILAR REACTION ON PREVIOUS EXPOSURE TO DRUG [None]
  - HYPOTHERMIA [None]
